FAERS Safety Report 4675288-2 (Version None)
Quarter: 2005Q2

REPORT INFORMATION
  Report Type: 
  Country: None (occurrence: None)
  Receive Date: 20050527
  Receipt Date: 20050518
  Transmission Date: 20051028
  Serious: Yes (Other)
  Sender: FDA-Public Use
  Company Number: US-JNJFOC-20050203610

PATIENT
  Age: 12 Month
  Sex: Male

DRUGS (4)
  1. REMICADE [Suspect]
  2. REMICADE [Suspect]
     Indication: RHEUMATOID ARTHRITIS
  3. METHOTREXATE [Concomitant]
  4. PREDNISONE TAB [Concomitant]

REACTIONS (3)
  - DWARFISM [None]
  - GROWTH RETARDATION [None]
  - TRANSMISSION OF DRUG VIA SEMEN [None]
